FAERS Safety Report 9950936 (Version 1)
Quarter: 2014Q1

REPORT INFORMATION
  Report Type: Report from Study
  Country: US (occurrence: US)
  Receive Date: 20140304
  Receipt Date: 20140304
  Transmission Date: 20141002
  Serious: No
  Sender: FDA-Public Use
  Company Number: US-ABBVIE-13P-163-1070094-00

PATIENT
  Age: 22 Year
  Sex: Female
  Weight: 56.75 kg

DRUGS (6)
  1. HUMIRA [Suspect]
     Indication: CROHN^S DISEASE
     Dates: start: 20130215
  2. ORTHO CYCLEN [Concomitant]
     Indication: CONTRACEPTION
  3. PENTASA [Concomitant]
     Indication: CROHN^S DISEASE
  4. BUDEPRION [Concomitant]
     Indication: CROHN^S DISEASE
  5. ALBUTEROL [Concomitant]
     Indication: ASTHMA
  6. ZOFRAN [Concomitant]
     Indication: NAUSEA

REACTIONS (6)
  - Injection site erythema [Recovered/Resolved]
  - Injection site irritation [Recovered/Resolved]
  - Alopecia [Unknown]
  - Paraesthesia [Not Recovered/Not Resolved]
  - Muscle spasms [Not Recovered/Not Resolved]
  - Paraesthesia [Not Recovered/Not Resolved]
